FAERS Safety Report 21507834 (Version 12)
Quarter: 2024Q4

REPORT INFORMATION
  Report Type: Spontaneous
  Country: US (occurrence: US)
  Receive Date: 20221026
  Receipt Date: 20241206
  Transmission Date: 20250115
  Serious: Yes (Other)
  Sender: PFIZER
  Company Number: US-PFIZER INC-2020446894

PATIENT
  Age: 80 Year
  Sex: Female
  Weight: 63.96 kg

DRUGS (6)
  1. IBRANCE [Suspect]
     Active Substance: PALBOCICLIB
     Indication: Metastatic neoplasm
     Dosage: 125 MG, 1 TABLET DAILY (QUANTITY: 21)
     Route: 048
  2. IBRANCE [Suspect]
     Active Substance: PALBOCICLIB
     Dosage: 100 MG, DAILY (1 TABLET ORALLY DAILY)
     Route: 048
  3. IBRANCE [Suspect]
     Active Substance: PALBOCICLIB
     Dosage: 125 MG, CYCLIC (QD 2 WEEKS ON 1 WEEK OFF)
     Route: 048
  4. IBRANCE [Suspect]
     Active Substance: PALBOCICLIB
     Dosage: 100 MG, CYCLIC (QD 2 WEEKS ON 2 WEEKS OFF)
     Route: 048
  5. IBRANCE [Suspect]
     Active Substance: PALBOCICLIB
     Dosage: 100 MG, CYCLIC (21 DAYS ON 7 DAYS OFF)
     Route: 048
  6. ANASTROZOLE [Concomitant]
     Active Substance: ANASTROZOLE
     Indication: Metastatic neoplasm
     Dosage: UNK

REACTIONS (4)
  - Cataract [Unknown]
  - Neutropenia [Unknown]
  - White blood cell count decreased [Unknown]
  - Off label use [Unknown]

NARRATIVE: CASE EVENT DATE: 20220101
